FAERS Safety Report 15951040 (Version 2)
Quarter: 2019Q4

REPORT INFORMATION
  Report Type: Spontaneous
  Country: FR (occurrence: FR)
  Receive Date: 20190211
  Receipt Date: 20191025
  Transmission Date: 20200122
  Serious: Yes (Life-Threatening)
  Sender: FDA-Public Use
  Company Number: FR-PFIZER INC-2019054832

PATIENT
  Age: 80 Year
  Sex: Female
  Weight: 110 kg

DRUGS (4)
  1. ZYVOXID [Suspect]
     Active Substance: LINEZOLID
     Indication: INFECTION
     Dosage: 1200 MG, UNK
     Route: 048
     Dates: start: 20181210, end: 20181215
  2. XARELTO [Suspect]
     Active Substance: RIVAROXABAN
     Indication: PULMONARY EMBOLISM
     Dosage: 30 MG, UNK
     Route: 048
     Dates: start: 20181215, end: 20181215
  3. TAZOCILLINE [Suspect]
     Active Substance: PIPERACILLIN SODIUM\TAZOBACTAM SODIUM
     Indication: INFECTION
     Dosage: 12 G, UNK
     Route: 042
     Dates: start: 20181205, end: 20181214
  4. HEPARINE CALCIUM [Suspect]
     Active Substance: HEPARIN CALCIUM
     Indication: PULMONARY EMBOLISM
     Dosage: 2000 IU, UNK
     Route: 042
     Dates: start: 20181205, end: 20181215

REACTIONS (3)
  - Rash [Recovering/Resolving]
  - Haematemesis [Recovering/Resolving]
  - Anaemia [Recovering/Resolving]

NARRATIVE: CASE EVENT DATE: 20181215
